FAERS Safety Report 8785396 (Version 1)
Quarter: 2012Q4

REPORT INFORMATION
  Report Type: 
  Country: US (occurrence: US)
  Receive Date: 20120914
  Receipt Date: 20120914
  Transmission Date: 20130627
  Serious: No
  Sender: FDA-Public Use
  Company Number: US-PFIZER INC-2012226583

PATIENT
  Age: 65 Year
  Sex: Male
  Weight: 90.7 kg

DRUGS (3)
  1. LYRICA [Suspect]
     Indication: BURNING SENSATION
     Dosage: 150 mg, 2x/day
  2. TRICOR [Concomitant]
     Dosage: 145 mg, UNK
  3. NEXIUM [Concomitant]
     Indication: DYSPEPSIA
     Dosage: 40 mg, 1x/day

REACTIONS (2)
  - Burning sensation [Not Recovered/Not Resolved]
  - Insomnia [Unknown]
